FAERS Safety Report 11243785 (Version 1)
Quarter: 2015Q3

REPORT INFORMATION
  Report Type: Spontaneous
  Country: US (occurrence: US)
  Receive Date: 20150707
  Receipt Date: 20150707
  Transmission Date: 20151125
  Serious: No
  Sender: FDA-Public Use
  Company Number: US-TEVA-575995ACC

PATIENT
  Age: 38 Year
  Sex: Female
  Weight: 86.26 kg

DRUGS (1)
  1. PARAGARD T 380A [Suspect]
     Active Substance: COPPER
     Indication: CONTRACEPTION
     Route: 015
     Dates: start: 20150515, end: 20150601

REACTIONS (5)
  - Device expulsion [Recovered/Resolved]
  - Cough [Unknown]
  - Menorrhagia [Unknown]
  - Dysmenorrhoea [Unknown]
  - Ovarian cyst [Unknown]

NARRATIVE: CASE EVENT DATE: 20150601
